FAERS Safety Report 8132126-3 (Version None)
Quarter: 2012Q1

REPORT INFORMATION
  Report Type: 
  Country: None (occurrence: None)
  Receive Date: 20120213
  Receipt Date: 20120208
  Transmission Date: 20120608
  Serious: No
  Sender: FDA-Public Use
  Company Number: US-PFIZER INC-2012035023

PATIENT
  Sex: Female

DRUGS (1)
  1. CLEOCIN HYDROCHLORIDE [Suspect]
     Indication: ACNE
     Dosage: UNK, 2X/DAY
     Route: 061
     Dates: start: 20120101, end: 20120101

REACTIONS (1)
  - DRUG INEFFECTIVE [None]
